FAERS Safety Report 18531690 (Version 1)
Quarter: 2020Q4

REPORT INFORMATION
  Report Type: Spontaneous
  Country: US (occurrence: US)
  Receive Date: 20201123
  Receipt Date: 20201123
  Transmission Date: 20210114
  Serious: No
  Sender: FDA-Public Use
  Company Number: US-BIOGEN-2020BI00947618

PATIENT
  Sex: Female

DRUGS (121)
  1. AVONEX [Suspect]
     Active Substance: INTERFERON BETA-1A
  2. AVONEX [Suspect]
     Active Substance: INTERFERON BETA-1A
  3. AVONEX [Suspect]
     Active Substance: INTERFERON BETA-1A
  4. DULOXETINE. [Concomitant]
     Active Substance: DULOXETINE
     Route: 065
  5. OMEPRAZOLE. [Concomitant]
     Active Substance: OMEPRAZOLE
     Route: 065
  6. TERBINAFINE. [Concomitant]
     Active Substance: TERBINAFINE
     Route: 065
  7. BENADRYL [Concomitant]
     Active Substance: DIPHENHYDRAMINE HYDROCHLORIDE
     Route: 065
  8. LORATADINE. [Concomitant]
     Active Substance: LORATADINE
     Route: 065
  9. DOCUSATE [Concomitant]
     Active Substance: DOCUSATE
     Route: 065
  10. ONDANSETRON [Concomitant]
     Active Substance: ONDANSETRON
     Route: 065
  11. ONDANSETRON [Concomitant]
     Active Substance: ONDANSETRON
     Route: 065
  12. VITAMIN D3 [Concomitant]
     Active Substance: CHOLECALCIFEROL
     Route: 065
  13. TRAMADOL. [Concomitant]
     Active Substance: TRAMADOL
     Route: 065
  14. NAPROSYN [Concomitant]
     Active Substance: NAPROXEN
     Route: 065
  15. ALBUTEROL. [Concomitant]
     Active Substance: ALBUTEROL
     Route: 065
  16. AVONEX [Suspect]
     Active Substance: INTERFERON BETA-1A
  17. AVONEX [Suspect]
     Active Substance: INTERFERON BETA-1A
  18. VITAMIN B12 [Concomitant]
     Active Substance: CYANOCOBALAMIN
     Route: 065
  19. TERBINAFINE. [Concomitant]
     Active Substance: TERBINAFINE
     Route: 065
  20. TERBINAFINE. [Concomitant]
     Active Substance: TERBINAFINE
     Route: 065
  21. LORATADINE. [Concomitant]
     Active Substance: LORATADINE
     Route: 065
  22. DOCUSATE [Concomitant]
     Active Substance: DOCUSATE
     Route: 065
  23. ONDANSETRON [Concomitant]
     Active Substance: ONDANSETRON
     Route: 065
  24. CALCIUM [Concomitant]
     Active Substance: CALCIUM
     Route: 065
  25. ONDANSETRON [Concomitant]
     Active Substance: ONDANSETRON
     Route: 065
  26. TRAMADOL. [Concomitant]
     Active Substance: TRAMADOL
     Route: 065
  27. NAPROSYN [Concomitant]
     Active Substance: NAPROXEN
     Route: 065
  28. ALBUTEROL. [Concomitant]
     Active Substance: ALBUTEROL
     Route: 065
  29. ALBUTEROL. [Concomitant]
     Active Substance: ALBUTEROL
     Route: 065
  30. ALBUTEROL. [Concomitant]
     Active Substance: ALBUTEROL
     Route: 065
  31. TUMS [Concomitant]
     Active Substance: CALCIUM CARBONATE
     Route: 065
  32. TUMS [Concomitant]
     Active Substance: CALCIUM CARBONATE
     Route: 065
  33. BUPROPION. [Concomitant]
     Active Substance: BUPROPION
     Route: 065
  34. BUPROPION. [Concomitant]
     Active Substance: BUPROPION
     Route: 065
  35. BUPROPION. [Concomitant]
     Active Substance: BUPROPION
     Route: 065
  36. BUPROPION. [Concomitant]
     Active Substance: BUPROPION
     Route: 065
  37. BUPROPION. [Concomitant]
     Active Substance: BUPROPION
     Route: 065
  38. DULOXETINE. [Concomitant]
     Active Substance: DULOXETINE
     Route: 065
  39. DULOXETINE. [Concomitant]
     Active Substance: DULOXETINE
     Route: 065
  40. TERBINAFINE. [Concomitant]
     Active Substance: TERBINAFINE
     Route: 065
  41. BENADRYL [Concomitant]
     Active Substance: DIPHENHYDRAMINE HYDROCHLORIDE
     Route: 065
  42. ONDANSETRON [Concomitant]
     Active Substance: ONDANSETRON
     Route: 065
  43. CALCIUM [Concomitant]
     Active Substance: CALCIUM
     Route: 065
  44. ONDANSETRON [Concomitant]
     Active Substance: ONDANSETRON
     Route: 065
  45. ONDANSETRON [Concomitant]
     Active Substance: ONDANSETRON
     Route: 065
  46. AVONEX [Suspect]
     Active Substance: INTERFERON BETA-1A
  47. BACLOFEN. [Concomitant]
     Active Substance: BACLOFEN
     Route: 065
  48. BACLOFEN. [Concomitant]
     Active Substance: BACLOFEN
     Route: 065
  49. OMEPRAZOLE. [Concomitant]
     Active Substance: OMEPRAZOLE
     Route: 065
  50. OMEPRAZOLE. [Concomitant]
     Active Substance: OMEPRAZOLE
     Route: 065
  51. TERBINAFINE. [Concomitant]
     Active Substance: TERBINAFINE
     Route: 065
  52. BENADRYL [Concomitant]
     Active Substance: DIPHENHYDRAMINE HYDROCHLORIDE
     Route: 065
  53. BENADRYL [Concomitant]
     Active Substance: DIPHENHYDRAMINE HYDROCHLORIDE
     Route: 065
  54. DOCUSATE [Concomitant]
     Active Substance: DOCUSATE
     Route: 065
  55. CALCIUM [Concomitant]
     Active Substance: CALCIUM
     Route: 065
  56. ONDANSETRON [Concomitant]
     Active Substance: ONDANSETRON
     Route: 065
  57. VITAMIN D3 [Concomitant]
     Active Substance: CHOLECALCIFEROL
     Route: 065
  58. VITAMIN D3 [Concomitant]
     Active Substance: CHOLECALCIFEROL
     Route: 065
  59. NAPROSYN [Concomitant]
     Active Substance: NAPROXEN
     Route: 065
  60. NAPROSYN [Concomitant]
     Active Substance: NAPROXEN
     Route: 065
  61. ALBUTEROL. [Concomitant]
     Active Substance: ALBUTEROL
     Route: 065
  62. ALBUTEROL. [Concomitant]
     Active Substance: ALBUTEROL
     Route: 065
  63. TUMS [Concomitant]
     Active Substance: CALCIUM CARBONATE
     Route: 065
  64. TUMS [Concomitant]
     Active Substance: CALCIUM CARBONATE
     Route: 065
  65. TUMS [Concomitant]
     Active Substance: CALCIUM CARBONATE
     Route: 065
  66. AVONEX [Suspect]
     Active Substance: INTERFERON BETA-1A
  67. CLONAZEPAM. [Concomitant]
     Active Substance: CLONAZEPAM
     Route: 065
  68. CLONAZEPAM. [Concomitant]
     Active Substance: CLONAZEPAM
     Route: 065
  69. BACLOFEN. [Concomitant]
     Active Substance: BACLOFEN
     Route: 065
  70. VITAMIN B12 [Concomitant]
     Active Substance: CYANOCOBALAMIN
     Route: 065
  71. OMEPRAZOLE. [Concomitant]
     Active Substance: OMEPRAZOLE
     Route: 065
  72. ONDANSETRON [Concomitant]
     Active Substance: ONDANSETRON
     Route: 065
  73. ONDANSETRON [Concomitant]
     Active Substance: ONDANSETRON
     Route: 065
  74. TRAMADOL. [Concomitant]
     Active Substance: TRAMADOL
     Route: 065
  75. TRAMADOL. [Concomitant]
     Active Substance: TRAMADOL
     Route: 065
  76. CLONAZEPAM. [Concomitant]
     Active Substance: CLONAZEPAM
     Route: 065
  77. BACLOFEN. [Concomitant]
     Active Substance: BACLOFEN
     Route: 065
  78. VITAMIN B12 [Concomitant]
     Active Substance: CYANOCOBALAMIN
     Route: 065
  79. VITAMIN B12 [Concomitant]
     Active Substance: CYANOCOBALAMIN
     Route: 065
  80. VITAMIN B12 [Concomitant]
     Active Substance: CYANOCOBALAMIN
     Route: 065
  81. VITAMIN B12 [Concomitant]
     Active Substance: CYANOCOBALAMIN
     Route: 065
  82. DULOXETINE. [Concomitant]
     Active Substance: DULOXETINE
     Route: 065
  83. BENADRYL [Concomitant]
     Active Substance: DIPHENHYDRAMINE HYDROCHLORIDE
     Route: 065
  84. DOCUSATE [Concomitant]
     Active Substance: DOCUSATE
     Route: 065
  85. DOCUSATE [Concomitant]
     Active Substance: DOCUSATE
     Route: 065
  86. ONDANSETRON [Concomitant]
     Active Substance: ONDANSETRON
     Route: 065
  87. CALCIUM [Concomitant]
     Active Substance: CALCIUM
     Route: 065
  88. VITAMIN D3 [Concomitant]
     Active Substance: CHOLECALCIFEROL
     Route: 065
  89. VITAMIN D3 [Concomitant]
     Active Substance: CHOLECALCIFEROL
     Route: 065
  90. NAPROSYN [Concomitant]
     Active Substance: NAPROXEN
     Route: 065
  91. NAPROSYN [Concomitant]
     Active Substance: NAPROXEN
     Route: 065
  92. AVONEX [Suspect]
     Active Substance: INTERFERON BETA-1A
     Indication: MULTIPLE SCLEROSIS
     Route: 065
  93. AVONEX [Suspect]
     Active Substance: INTERFERON BETA-1A
  94. AVONEX [Suspect]
     Active Substance: INTERFERON BETA-1A
  95. AVONEX [Suspect]
     Active Substance: INTERFERON BETA-1A
  96. AVONEX [Suspect]
     Active Substance: INTERFERON BETA-1A
  97. CLONAZEPAM. [Concomitant]
     Active Substance: CLONAZEPAM
     Route: 065
  98. CLONAZEPAM. [Concomitant]
     Active Substance: CLONAZEPAM
     Route: 065
  99. DULOXETINE. [Concomitant]
     Active Substance: DULOXETINE
     Route: 065
  100. OMEPRAZOLE. [Concomitant]
     Active Substance: OMEPRAZOLE
     Route: 065
  101. OMEPRAZOLE. [Concomitant]
     Active Substance: OMEPRAZOLE
     Route: 065
  102. LORATADINE. [Concomitant]
     Active Substance: LORATADINE
     Route: 065
  103. LORATADINE. [Concomitant]
     Active Substance: LORATADINE
     Route: 065
  104. LORATADINE. [Concomitant]
     Active Substance: LORATADINE
     Route: 065
  105. CALCIUM [Concomitant]
     Active Substance: CALCIUM
     Route: 065
  106. CALCIUM [Concomitant]
     Active Substance: CALCIUM
     Route: 065
  107. VITAMIN D3 [Concomitant]
     Active Substance: CHOLECALCIFEROL
     Route: 065
  108. TRAMADOL. [Concomitant]
     Active Substance: TRAMADOL
     Route: 065
  109. TRAMADOL. [Concomitant]
     Active Substance: TRAMADOL
     Route: 065
  110. AVONEX [Suspect]
     Active Substance: INTERFERON BETA-1A
  111. CLONAZEPAM. [Concomitant]
     Active Substance: CLONAZEPAM
     Route: 065
  112. BACLOFEN. [Concomitant]
     Active Substance: BACLOFEN
     Route: 065
  113. BACLOFEN. [Concomitant]
     Active Substance: BACLOFEN
     Route: 065
  114. BUPROPION. [Concomitant]
     Active Substance: BUPROPION
     Route: 065
  115. DULOXETINE. [Concomitant]
     Active Substance: DULOXETINE
     Route: 065
  116. TERBINAFINE. [Concomitant]
     Active Substance: TERBINAFINE
     Route: 065
  117. BENADRYL [Concomitant]
     Active Substance: DIPHENHYDRAMINE HYDROCHLORIDE
     Route: 065
  118. LORATADINE. [Concomitant]
     Active Substance: LORATADINE
     Route: 065
  119. DOCUSATE [Concomitant]
     Active Substance: DOCUSATE
     Route: 065
  120. ONDANSETRON [Concomitant]
     Active Substance: ONDANSETRON
     Route: 065
  121. TUMS [Concomitant]
     Active Substance: CALCIUM CARBONATE
     Route: 065

REACTIONS (1)
  - Multiple sclerosis relapse [Unknown]
